FAERS Safety Report 7368028-X (Version None)
Quarter: 2011Q1

REPORT INFORMATION
  Report Type: 
  Country: None (occurrence: None)
  Receive Date: 20110323
  Receipt Date: 20110315
  Transmission Date: 20110831
  Serious: Yes (Hospitalization)
  Sender: FDA-Public Use
  Company Number: BE-AMGEN-BELSP2011007666

PATIENT
  Age: 80 Year
  Sex: Female
  Weight: 55 kg

DRUGS (8)
  1. OMEPRAZOLE [Concomitant]
     Dosage: 40 MG, 1X/DAY
     Route: 048
     Dates: start: 20090101
  2. DEPRONAL [Concomitant]
     Dosage: TWICE DAILY
     Route: 048
  3. CALCIUM-D-SANDOZ [Concomitant]
     Dosage: UNK
     Route: 048
  4. LEDERTREXATE                       /00113801/ [Concomitant]
     Dosage: 7.5 MG, WEEKLY
     Route: 048
  5. BONVIVA                            /01304701/ [Concomitant]
     Dosage: UNK
     Route: 042
     Dates: start: 20090101
  6. DEPRONAL [Concomitant]
     Dosage: UNK
     Route: 048
  7. ENBREL [Suspect]
     Indication: RHEUMATOID ARTHRITIS
     Dosage: 50 MG, WEEKLY
     Route: 058
     Dates: start: 20040401, end: 20100901
  8. ASAFLOW [Concomitant]
     Dosage: UNK
     Route: 048
     Dates: start: 20090101

REACTIONS (1)
  - COLON CANCER [None]
